FAERS Safety Report 6733849-0 (Version None)
Quarter: 2010Q2

REPORT INFORMATION
  Report Type: 
  Country: None (occurrence: None)
  Receive Date: 20100520
  Receipt Date: 20100511
  Transmission Date: 20101027
  Serious: Yes (Other)
  Sender: FDA-Public Use
  Company Number: US-ASTRAZENECA-2010SE21592

PATIENT
  Age: 55 Year
  Sex: Male

DRUGS (8)
  1. ESOMEPRAZOLE [Suspect]
     Route: 042
  2. PHENYTOIN [Interacting]
     Route: 042
  3. FOSPHENYTOIN [Concomitant]
     Indication: PROPHYLAXIS
     Dosage: LOADING DOSE
     Route: 042
  4. ALBUMIN (HUMAN) [Concomitant]
     Route: 042
  5. LORAZEPAM [Concomitant]
  6. DOBUTAMINE HCL [Concomitant]
  7. NOREPINEPHRINE [Concomitant]
  8. VASOPRESSIN [Concomitant]
     Route: 042

REACTIONS (2)
  - DRUG INTERACTION [None]
  - THROMBOCYTOPENIA [None]
